FAERS Safety Report 10462284 (Version 1)
Quarter: 2014Q3

REPORT INFORMATION
  Report Type: Spontaneous
  Country: BR (occurrence: BR)
  Receive Date: 20140918
  Receipt Date: 20140918
  Transmission Date: 20150326
  Serious: Yes (Other)
  Sender: FDA-Public Use
  Company Number: BR-PFIZER INC-2014252395

PATIENT
  Age: 52 Year
  Sex: Female
  Weight: 57 kg

DRUGS (8)
  1. XALATAN [Suspect]
     Active Substance: LATANOPROST
     Dosage: 6 UG (2 DROPS IN EACH EYE), UNSPECIFIED FREQUENCY
  2. PAROXETINE [Concomitant]
     Active Substance: PAROXETINE\PAROXETINE HYDROCHLORIDE
     Indication: ANXIETY
     Dosage: 2 TABLETS, DAILY
     Dates: start: 201406
  3. PAROXETINE [Concomitant]
     Active Substance: PAROXETINE\PAROXETINE HYDROCHLORIDE
     Indication: DEPRESSION
  4. OMEPRAZOLE. [Concomitant]
     Active Substance: OMEPRAZOLE
     Indication: GASTRITIS
     Dosage: 1 TABLET, DAILY
     Dates: start: 2009
  5. XALATAN [Suspect]
     Active Substance: LATANOPROST
     Indication: GLAUCOMA
     Dosage: 3 UG (1 DROP IN EACH EYE), DAILY
     Route: 047
     Dates: start: 20140610
  6. PARACETAMOL [Concomitant]
     Active Substance: ACETAMINOPHEN
     Indication: PAIN
     Dosage: 4 TABLETS, 3X/WEEK
     Dates: start: 2002
  7. BROMAZEPAM [Concomitant]
     Active Substance: BROMAZEPAM
     Indication: CONVULSION PROPHYLAXIS
     Dosage: 1 TABLET, 1X/DAY (AT NIGHT)
     Dates: start: 1994
  8. GABAPENTIN. [Concomitant]
     Active Substance: GABAPENTIN
     Indication: NERVOUS SYSTEM DISORDER
     Dosage: 1 TABLET, DAILY
     Dates: start: 201406

REACTIONS (5)
  - Intentional product misuse [Unknown]
  - Metamorphopsia [Not Recovered/Not Resolved]
  - Eye pruritus [Not Recovered/Not Resolved]
  - Convulsion [Unknown]
  - Nervous system disorder [Unknown]

NARRATIVE: CASE EVENT DATE: 2014
